FAERS Safety Report 4288129-2 (Version None)
Quarter: 2004Q1

REPORT INFORMATION
  Report Type: 
  Country: None (occurrence: None)
  Receive Date: 20040202
  Receipt Date: 20030317
  Transmission Date: 20041129
  Serious: Yes (Other)
  Sender: FDA-Public Use
  Company Number: 136209USA

PATIENT
  Age: 35 Year
  Sex: Female

DRUGS (7)
  1. COPAXONE [Suspect]
     Indication: MULTIPLE SCLEROSIS
     Dates: start: 20020601
  2. NEURONTIN [Concomitant]
  3. CELEBREX [Concomitant]
  4. BIRTH CONTROL PILLS [Concomitant]
  5. BACLOFEN [Concomitant]
  6. KLONOPIN [Concomitant]
  7. PROVIGIL [Concomitant]

REACTIONS (1)
  - ABORTION MISSED [None]
